FAERS Safety Report 6094405-3 (Version None)
Quarter: 2009Q1

REPORT INFORMATION
  Report Type: 
  Country: None (occurrence: None)
  Receive Date: 20090226
  Receipt Date: 20090217
  Transmission Date: 20090719
  Serious: Yes (Death, Life-Threatening, Other)
  Sender: FDA-Public Use
  Company Number: IT-BAXTER-2009BH002777

PATIENT
  Age: 44 Year
  Sex: Female

DRUGS (2)
  1. METRONIDAZOLE [Suspect]
     Indication: MYELOFIBROSIS
     Route: 065
  2. PIPERACILLIN [Suspect]
     Indication: MYELOFIBROSIS
     Route: 065

REACTIONS (6)
  - ACINETOBACTER INFECTION [None]
  - BLOOD CULTURE POSITIVE [None]
  - DEATH [None]
  - PYREXIA [None]
  - TOXIC EPIDERMAL NECROLYSIS [None]
  - WOUND INFECTION STAPHYLOCOCCAL [None]
